FAERS Safety Report 4905291-6 (Version None)
Quarter: 2006Q1

REPORT INFORMATION
  Report Type: 
  Country: None (occurrence: None)
  Receive Date: 20060203
  Receipt Date: 20060119
  Transmission Date: 20060701
  Serious: Yes (Hospitalization)
  Sender: FDA-Public Use
  Company Number: 28481

PATIENT
  Age: 72 Year
  Sex: Female

DRUGS (6)
  1. FLECAINIDE ACETATE [Suspect]
     Indication: ATRIAL FIBRILLATION
     Dosage: ORAL
     Route: 048
     Dates: end: 20020502
  2. DEPAKENE [Suspect]
     Dosage: 500 MG (500 MG, 1 IN 1 DAY(S)) ORAL
     Route: 048
     Dates: end: 20020502
  3. CORDARONE [Concomitant]
  4. FUROSEMIDE [Concomitant]
  5. PREVISCAN (FLUINDIONE) [Concomitant]
  6. EFFEXOR [Concomitant]

REACTIONS (4)
  - BLOOD THYROID STIMULATING HORMONE INCREASED [None]
  - FALL [None]
  - PSYCHOMOTOR SKILLS IMPAIRED [None]
  - TRI-IODOTHYRONINE FREE DECREASED [None]
